FAERS Safety Report 7462220-1 (Version None)
Quarter: 2011Q2

REPORT INFORMATION
  Report Type: 
  Country: None (occurrence: None)
  Receive Date: 20110506
  Receipt Date: 20100630
  Transmission Date: 20111010
  Serious: Yes (Death, Other)
  Sender: FDA-Public Use
  Company Number: US-BAYER-201032101NA

PATIENT
  Age: 70 Year
  Sex: Male
  Weight: 128.35 kg

DRUGS (9)
  1. AMIODARONE [Concomitant]
  2. ADVIL LIQUI-GELS [Concomitant]
  3. ALTACE [Concomitant]
  4. LOPRESSOR [Concomitant]
  5. LOTENSIN [Concomitant]
  6. LASIX [Concomitant]
  7. TOPROL-XL [Concomitant]
  8. TRASYLOL [Suspect]
     Indication: CORONARY ARTERY BYPASS
     Dosage: UNK
     Dates: start: 20040325
  9. ZOCOR [Concomitant]

REACTIONS (8)
  - PAIN [None]
  - FEAR [None]
  - EMOTIONAL DISTRESS [None]
  - DEATH [None]
  - RENAL FAILURE [None]
  - STRESS [None]
  - ANXIETY [None]
  - UNEVALUABLE EVENT [None]
